FAERS Safety Report 5899372-0 (Version None)
Quarter: 2008Q3

REPORT INFORMATION
  Report Type: 
  Country: None (occurrence: None)
  Receive Date: 20080924
  Receipt Date: 20080915
  Transmission Date: 20090109
  Serious: Yes (Congenital Anomaly)
  Sender: FDA-Public Use
  Company Number: FEI2008-1704

PATIENT
  Age: 36 Week
  Sex: Female
  Weight: 3.646 kg

DRUGS (1)
  1. PARAGARD T 380A [Suspect]

REACTIONS (3)
  - CAESAREAN SECTION [None]
  - MATERNAL DRUGS AFFECTING FOETUS [None]
  - PYELOCALIECTASIS [None]
